FAERS Safety Report 8936774 (Version 1)
Quarter: 2012Q4

REPORT INFORMATION
  Report Type: 
  Country: US (occurrence: US)
  Receive Date: 20121130
  Receipt Date: 20121130
  Transmission Date: 20130627
  Serious: Yes (Hospitalization, Other)
  Sender: FDA-Public Use
  Company Number: US-PFIZER INC-2012298460

PATIENT
  Sex: Male
  Weight: 93.42 kg

DRUGS (5)
  1. CHANTIX [Suspect]
     Indication: SMOKING CESSATION THERAPY
     Dosage: Unk
  2. LORTAB [Concomitant]
     Dosage: 4x/day
  3. VALIUM [Concomitant]
     Dosage: daily at bed time
  4. GABAPENTIN [Concomitant]
     Dosage: daily at bed time
  5. MOBIC [Concomitant]
     Dosage: 2x/day

REACTIONS (11)
  - Lung disorder [Unknown]
  - Feeling cold [Unknown]
  - Oxygen saturation decreased [Unknown]
  - White blood cell count abnormal [Unknown]
  - Intervertebral disc degeneration [Unknown]
  - Lung disorder [Not Recovered/Not Resolved]
  - Haemoptysis [Not Recovered/Not Resolved]
  - Chills [Not Recovered/Not Resolved]
  - Nasopharyngitis [Not Recovered/Not Resolved]
  - Respiratory tract congestion [Not Recovered/Not Resolved]
  - Back pain [Not Recovered/Not Resolved]
